FAERS Safety Report 11920479 (Version 1)
Quarter: 2016Q1

REPORT INFORMATION
  Report Type: Spontaneous
  Country: CO (occurrence: CO)
  Receive Date: 20160115
  Receipt Date: 20160115
  Transmission Date: 20160526
  Serious: Yes (Hospitalization)
  Sender: FDA-Public Use
  Company Number: CO-BAXTER-2016BAX000841

PATIENT
  Age: 50 Year
  Sex: Female

DRUGS (1)
  1. TISSEEL VH S/D [Suspect]
     Active Substance: APROTININ\CALCIUM CHLORIDE\FIBRINOGEN HUMAN\FACTOR XIII CONCENTRATE (HUMAN)\THROMBIN
     Indication: MENINGEAL REPAIR
     Route: 061
     Dates: start: 20151223, end: 20151223

REACTIONS (1)
  - Cerebrospinal fistula [Recovered/Resolved]

NARRATIVE: CASE EVENT DATE: 20160101
